FAERS Safety Report 13175567 (Version 1)
Quarter: 2017Q1

REPORT INFORMATION
  Report Type: Spontaneous
  Country: US (occurrence: US)
  Receive Date: 20170201
  Receipt Date: 20170201
  Transmission Date: 20170428
  Serious: No
  Sender: FDA-Public Use
  Company Number: US-GALDERMA-US16008273

PATIENT
  Age: 14 Year
  Sex: Male

DRUGS (1)
  1. EPIDUO [Suspect]
     Active Substance: ADAPALENE\BENZOYL PEROXIDE
     Indication: SCAR
     Dosage: 0.1% / 2.5%
     Route: 061

REACTIONS (2)
  - Intentional product misuse [Recovered/Resolved]
  - Drug ineffective for unapproved indication [Unknown]
